FAERS Safety Report 13782619 (Version 1)
Quarter: 2017Q3

REPORT INFORMATION
  Report Type: Spontaneous
  Country: FR (occurrence: FR)
  Receive Date: 20170724
  Receipt Date: 20170724
  Transmission Date: 20171127
  Serious: Yes (Hospitalization)
  Sender: FDA-Public Use
  Company Number: FR-ABBVIE-17P-056-2046028-00

PATIENT
  Age: 49 Year
  Sex: Female

DRUGS (11)
  1. KALETRA [Suspect]
     Active Substance: LOPINAVIR\RITONAVIR
     Indication: HIV INFECTION
     Route: 048
     Dates: start: 20110226, end: 20110324
  2. ISENTRESS [Suspect]
     Active Substance: RALTEGRAVIR POTASSIUM
     Indication: HIV INFECTION
     Dosage: RALTEGRAVIR 400 MG
     Route: 048
     Dates: start: 20170228
  3. NORVIR [Suspect]
     Active Substance: RITONAVIR
     Indication: HIV INFECTION
     Route: 048
     Dates: start: 20121025, end: 20131025
  4. TRUVADA [Suspect]
     Active Substance: EMTRICITABINE\TENOFOVIR DISOPROXIL FUMARATE
     Indication: HIV INFECTION
     Route: 048
     Dates: start: 20170228
  5. COMBIVIR [Suspect]
     Active Substance: LAMIVUDINE\ZIDOVUDINE
     Indication: PRODUCT USED FOR UNKNOWN INDICATION
     Dosage: ZIDOVUDINE 300 MG + LAMIVUDINE 150 MG
     Route: 048
     Dates: start: 20110226, end: 20110324
  6. EMTRICITABINE RILPIVIRINE TENOFOVIR DISOPROXIL (EVIPLERA) [Suspect]
     Active Substance: EMTRICITABINE\RILPIVIRINE\TENOFOVIR DISOPROXIL FUMARATE
     Indication: HIV INFECTION
     Route: 048
     Dates: start: 20131025, end: 20170228
  7. ATRIPLA [Suspect]
     Active Substance: EFAVIRENZ\EMTRICITABINE\TENOFOVIR DISOPROXIL FUMARATE
     Indication: HIV INFECTION
     Route: 048
     Dates: start: 20110324, end: 20121004
  8. KIVEXA [Suspect]
     Active Substance: ABACAVIR SULFATE\LAMIVUDINE
     Indication: HIV INFECTION
     Dosage: ABACAVIR (SULFATE) 600 MG + LAMIVUDINE 300 MG
     Route: 048
     Dates: start: 20121025, end: 20131025
  9. KALETRA [Suspect]
     Active Substance: LOPINAVIR\RITONAVIR
     Route: 048
     Dates: start: 20121004, end: 20121025
  10. COMBIVIR [Suspect]
     Active Substance: LAMIVUDINE\ZIDOVUDINE
     Dosage: ZIDOVUDINE 300 MG + LAMIVUDINE 150 MG
     Route: 048
     Dates: start: 20121004, end: 20121025
  11. REYATAZ [Suspect]
     Active Substance: ATAZANAVIR SULFATE
     Indication: HIV INFECTION
     Dosage: ATAZANAVIR (SULFATE) 300 MG
     Route: 048
     Dates: start: 20121025, end: 20131025

REACTIONS (1)
  - Mitochondrial cytopathy [Not Recovered/Not Resolved]

NARRATIVE: CASE EVENT DATE: 201612
